FAERS Safety Report 22820109 (Version 5)
Quarter: 2023Q4

REPORT INFORMATION
  Report Type: Spontaneous
  Country: US (occurrence: US)
  Receive Date: 20230814
  Receipt Date: 20231128
  Transmission Date: 20240109
  Serious: No
  Sender: FDA-Public Use
  Company Number: US-PFIZER INC-202300272216

PATIENT
  Age: 17 Year
  Sex: Male
  Weight: 65.77 kg

DRUGS (4)
  1. GENOTROPIN [Suspect]
     Active Substance: SOMATROPIN
     Indication: Growth hormone deficiency
     Dosage: 2.6 MG, DAILY
  2. GENOTROPIN [Suspect]
     Active Substance: SOMATROPIN
     Dosage: 2.2 MG, DAILY
  3. FOCALIN [Concomitant]
     Active Substance: DEXMETHYLPHENIDATE HYDROCHLORIDE
     Indication: Attention deficit hyperactivity disorder
     Dosage: 25 MG
  4. TESTOSTERONE [Concomitant]
     Active Substance: TESTOSTERONE
     Indication: Delayed puberty
     Dosage: VERY LOW AMOUNT, MONTHLY

REACTIONS (7)
  - Device breakage [Unknown]
  - Device issue [Unknown]
  - Device information output issue [Unknown]
  - Device malfunction [Unknown]
  - Device mechanical issue [Unknown]
  - Drug dose omission by device [Unknown]
  - Illness [Unknown]

NARRATIVE: CASE EVENT DATE: 20230807
